FAERS Safety Report 21439657 (Version 1)
Quarter: 2022Q4

REPORT INFORMATION
  Report Type: Spontaneous
  Country: US (occurrence: US)
  Receive Date: 20221011
  Receipt Date: 20221011
  Transmission Date: 20230113
  Serious: No
  Sender: FDA-Public Use
  Company Number: US-PFIZER INC-202201213762

PATIENT
  Age: 86 Year
  Weight: 47.17 kg

DRUGS (2)
  1. PAXLOVID [Suspect]
     Active Substance: NIRMATRELVIR\RITONAVIR
     Indication: COVID-19 treatment
     Dosage: UNK
  2. LUMIGAN [Concomitant]
     Active Substance: BIMATOPROST
     Dosage: UNK

REACTIONS (7)
  - Dysgeusia [Unknown]
  - Taste disorder [Unknown]
  - Urticaria [Unknown]
  - Diarrhoea [Unknown]
  - Dizziness [Unknown]
  - Dysphonia [Unknown]
  - Illness [Unknown]

NARRATIVE: CASE EVENT DATE: 20221006
